FAERS Safety Report 13330415 (Version 6)
Quarter: 2017Q3

REPORT INFORMATION
  Report Type: Spontaneous
  Country: US (occurrence: US)
  Receive Date: 20170314
  Receipt Date: 20170717
  Transmission Date: 20171127
  Serious: Yes (Hospitalization, Other)
  Sender: FDA-Public Use
  Company Number: PHEH2017US007473

PATIENT
  Sex: Female
  Weight: 81.63 kg

DRUGS (1)
  1. ZOFRAN [Suspect]
     Active Substance: ONDANSETRON HYDROCHLORIDE
     Indication: VOMITING IN PREGNANCY
     Dosage: 8 MG, Q8H
     Route: 048
     Dates: start: 20040202

REACTIONS (8)
  - Sinusitis [Unknown]
  - Product use in unapproved indication [Unknown]
  - Dislocation of vertebra [Unknown]
  - Dehydration [Unknown]
  - Maternal exposure during pregnancy [Unknown]
  - Injury [Unknown]
  - Vulval haematoma [Unknown]
  - Gestational diabetes [Unknown]
